FAERS Safety Report 6443084-1 (Version None)
Quarter: 2009Q4

REPORT INFORMATION
  Report Type: 
  Country: None (occurrence: None)
  Receive Date: 20091117
  Receipt Date: 20091109
  Transmission Date: 20100525
  Serious: Yes (Hospitalization)
  Sender: FDA-Public Use
  Company Number: CA-ABBOTT-09P-028-0607813-00

PATIENT
  Sex: Male

DRUGS (4)
  1. BIAXIN XL [Suspect]
     Indication: DRUG USE FOR UNKNOWN INDICATION
  2. MONOCOR [Concomitant]
     Indication: DRUG USE FOR UNKNOWN INDICATION
  3. FELODIPINE [Concomitant]
     Indication: DRUG USE FOR UNKNOWN INDICATION
  4. WARFARIN SODIUM [Concomitant]
     Indication: DRUG USE FOR UNKNOWN INDICATION

REACTIONS (1)
  - ATRIOVENTRICULAR BLOCK COMPLETE [None]
